FAERS Safety Report 18314506 (Version 5)
Quarter: 2020Q4

REPORT INFORMATION
  Report Type: Report from Study
  Country: CA (occurrence: CA)
  Receive Date: 20200925
  Receipt Date: 20201221
  Transmission Date: 20210113
  Serious: Yes (Other)
  Sender: FDA-Public Use
  Company Number: CA-NALPROPION PHARMACEUTICALS INC.-2020-009596

PATIENT

DRUGS (32)
  1. CONTRAVE [Suspect]
     Active Substance: BUPROPION HYDROCHLORIDE\NALTREXONE HYDROCHLORIDE
     Dosage: STRENGTH: 90MG/8MG, 2 TABLET IN MORNING AND 1 IN EVENING, APPROX 19/OCT/2020
     Route: 048
     Dates: start: 202010, end: 202010
  2. CLONAZEPAM. [Concomitant]
     Active Substance: CLONAZEPAM
     Indication: ANXIETY
     Dosage: 0.5 MG, 3 IN 1 D
     Route: 048
  3. OZEMPIC [Concomitant]
     Active Substance: SEMAGLUTIDE
     Indication: DIABETES MELLITUS
     Dosage: 1 XWEEK INJ (1 MG, 1 IN 1 WK)
  4. CONTRAVE [Suspect]
     Active Substance: BUPROPION HYDROCHLORIDE\NALTREXONE HYDROCHLORIDE
     Indication: WEIGHT CONTROL
     Dosage: STRENGTH: 90MG/8MG (1 DOSAGE FORMS,1 IN 1 D)
     Route: 048
     Dates: start: 20200123, end: 20200213
  5. CONTRAVE [Suspect]
     Active Substance: BUPROPION HYDROCHLORIDE\NALTREXONE HYDROCHLORIDE
     Dosage: STRENGTH: 90MG/8MG, 2 TABS AM, 1 TAB LUNCH, 23/MAR/2020 (APPROXIMATELY)
     Route: 048
     Dates: start: 202003, end: 2020
  6. CONTRAVE [Suspect]
     Active Substance: BUPROPION HYDROCHLORIDE\NALTREXONE HYDROCHLORIDE
     Dosage: STRENGTH: 90MG/8MG, 2 TABLETS IN MORNING AND 2 TABLETS IN EVENING
     Route: 048
     Dates: start: 20201026
  7. INSULIN [Concomitant]
     Active Substance: INSULIN NOS
     Indication: TYPE 2 DIABETES MELLITUS
  8. TOUJEO [Concomitant]
     Active Substance: INSULIN GLARGINE
     Indication: DIABETES MELLITUS
     Dosage: 30 IU, BEDTIME (1 IN 1 D)
  9. CONTRAVE [Suspect]
     Active Substance: BUPROPION HYDROCHLORIDE\NALTREXONE HYDROCHLORIDE
     Indication: DECREASED APPETITE
     Dosage: STRENGTH: 90MG/8MG (1 DOSAGE FORMS,2 IN 1 D)
     Route: 048
     Dates: start: 20200214, end: 2020
  10. CLONIDINE. [Concomitant]
     Active Substance: CLONIDINE
     Indication: BLOOD PRESSURE ABNORMAL
     Dosage: 1/2 TABLET, MORNING AND LUNCH
     Route: 048
  11. RAMIPRIL. [Concomitant]
     Active Substance: RAMIPRIL
     Indication: BLOOD PRESSURE ABNORMAL
     Dosage: 10 MG Q AM
     Route: 048
  12. MONTELUKAST [Concomitant]
     Active Substance: MONTELUKAST SODIUM
     Indication: ASTHMA
     Dosage: BEDTIME (10 MG, 1 IN 1 D)
     Route: 048
  13. CETRIZINE [Concomitant]
     Active Substance: CETIRIZINE HYDROCHLORIDE
     Indication: ANTIALLERGIC THERAPY
     Dosage: MORNING (20 MG, 1 IN 1 D)
     Route: 048
  14. MAGNESIUM [Concomitant]
     Active Substance: MAGNESIUM
     Indication: SUPPLEMENTATION THERAPY
     Dosage: UNK
  15. INSULIN [Concomitant]
     Active Substance: INSULIN NOS
     Indication: HIDRADENITIS
     Dosage: 40 MG AT HS
  16. CALCIUM CITRATE [Concomitant]
     Active Substance: CALCIUM CITRATE
     Indication: PRODUCT USED FOR UNKNOWN INDICATION
     Dosage: UNK
  17. CALCIUM [Concomitant]
     Active Substance: CALCIUM
     Indication: PRODUCT USED FOR UNKNOWN INDICATION
     Dosage: UNK
  18. VENLAFAXINE [Concomitant]
     Active Substance: VENLAFAXINE HYDROCHLORIDE
     Dosage: EXTENDED RELEASE (75 MG, 3 IN 1 D)
     Route: 048
  19. CONTRAVE [Suspect]
     Active Substance: BUPROPION HYDROCHLORIDE\NALTREXONE HYDROCHLORIDE
     Dosage: STRENGTH: 90MG/8MG,1 TAB AM, 2 TABS LUNCH 16/MAR/2020 (APPROXIMATELY)
     Route: 048
     Dates: start: 202003, end: 2020
  20. CONTRAVE [Suspect]
     Active Substance: BUPROPION HYDROCHLORIDE\NALTREXONE HYDROCHLORIDE
     Dosage: STRENGTH: 90MG/8MG,1 TAB BID, 30/MAR/2020 (APPROXIMATELY), DOSE REDUCED
     Route: 048
     Dates: start: 202003, end: 202004
  21. CONTRAVE [Suspect]
     Active Substance: BUPROPION HYDROCHLORIDE\NALTREXONE HYDROCHLORIDE
     Dosage: STRENGTH: 90MG/8MG, 2 TABLET IN MORNING, APPROX, 05/OCT/2020
     Route: 048
     Dates: start: 202010, end: 202010
  22. ROSUVASTATIN. [Concomitant]
     Active Substance: ROSUVASTATIN
     Indication: BLOOD CHOLESTEROL ABNORMAL
  23. VENLAFAXINE [Concomitant]
     Active Substance: VENLAFAXINE HYDROCHLORIDE
     Indication: AFFECTIVE DISORDER
     Dosage: EXTENDED RELEASE, MORNING (37.5 MG, 1 IN 1 D)
     Route: 048
  24. METFORMIN [Concomitant]
     Active Substance: METFORMIN HYDROCHLORIDE
     Indication: DIABETES MELLITUS
     Dosage: 500 MG, 2 IN 1 D
     Route: 048
  25. GABAPENTIN. [Concomitant]
     Active Substance: GABAPENTIN
     Indication: PRODUCT USED FOR UNKNOWN INDICATION
     Dosage: 200 MG, 4 IN 1 D
     Route: 048
  26. CONTRAVE [Suspect]
     Active Substance: BUPROPION HYDROCHLORIDE\NALTREXONE HYDROCHLORIDE
     Dosage: STRENGTH: 90MG/8MG, 2 TABLETS IN MORNING, STOP DATE: APPROX. 13/AUG/2020
     Route: 048
     Dates: start: 20200420, end: 202008
  27. ASA [Concomitant]
     Active Substance: ASPIRIN
     Indication: ANTIPLATELET THERAPY
     Dosage: 81 MG,1 IN 1 D
     Route: 048
  28. TRYPTOPHAN                         /00215101/ [Concomitant]
     Active Substance: TRYPTOPHAN
     Indication: AMINO ACID LEVEL ABNORMAL
     Dosage: BEDTIME (1 IN 1 D)
     Route: 048
  29. ROSUVASTATIN. [Concomitant]
     Active Substance: ROSUVASTATIN
     Indication: LIPIDS ABNORMAL
     Dosage: BEDTIME (40 MG, 1 IN 1 D)
     Route: 048
  30. VITAMIN C [Concomitant]
     Active Substance: ASCORBIC ACID
     Indication: PRODUCT USED FOR UNKNOWN INDICATION
     Dosage: UNK
  31. CENTRUM SELECT [Concomitant]
     Active Substance: VITAMINS
     Indication: PRODUCT USED FOR UNKNOWN INDICATION
     Dosage: UNK
  32. RABEPRAZOLE [Concomitant]
     Active Substance: RABEPRAZOLE
     Indication: GASTRIC DISORDER
     Dosage: 20 MG, 2 IN 1 D
     Route: 048

REACTIONS (27)
  - Weight increased [Not Recovered/Not Resolved]
  - Poor quality sleep [Recovering/Resolving]
  - Arthritis [Not Recovered/Not Resolved]
  - Headache [Not Recovered/Not Resolved]
  - Nightmare [Unknown]
  - Joint swelling [Not Recovered/Not Resolved]
  - Insomnia [Recovering/Resolving]
  - Peripheral swelling [Not Recovered/Not Resolved]
  - Dental cyst [Unknown]
  - Tremor [Not Recovered/Not Resolved]
  - Drug titration error [Unknown]
  - Product residue present [Unknown]
  - Food craving [Not Recovered/Not Resolved]
  - Muscle strain [Unknown]
  - Inappropriate schedule of product administration [Unknown]
  - Product prescribing error [Unknown]
  - Head injury [Unknown]
  - Stress [Unknown]
  - Blood pressure increased [Not Recovered/Not Resolved]
  - Hyperhidrosis [Not Recovered/Not Resolved]
  - Therapeutic response unexpected [Unknown]
  - Breast mass [Unknown]
  - Fall [Unknown]
  - Blood iron decreased [Not Recovered/Not Resolved]
  - Contusion [Not Recovered/Not Resolved]
  - Increased appetite [Not Recovered/Not Resolved]
  - Fatigue [Not Recovered/Not Resolved]

NARRATIVE: CASE EVENT DATE: 2020
